FAERS Safety Report 17725619 (Version 1)
Quarter: 2020Q2

REPORT INFORMATION
  Report Type: Spontaneous
  Country: CA (occurrence: CA)
  Receive Date: 20200429
  Receipt Date: 20200429
  Transmission Date: 20200714
  Serious: Yes (Hospitalization)
  Sender: FDA-Public Use
  Company Number: CA-BAYER-2020-071561

PATIENT
  Age: 17 Year
  Sex: Female
  Weight: 58 kg

DRUGS (1)
  1. MIRENA [Suspect]
     Active Substance: LEVONORGESTREL
     Indication: DYSMENORRHOEA
     Dosage: 20 ?G PER DAY CONTINUOUSLY
     Route: 015

REACTIONS (6)
  - Weight increased [Recovered/Resolved]
  - Alopecia [Recovered/Resolved]
  - Depression [Recovered/Resolved]
  - Ovarian cyst [Recovered/Resolved]
  - Menorrhagia [Recovered/Resolved]
  - Dysmenorrhoea [Recovered/Resolved]
